FAERS Safety Report 13158570 (Version 3)
Quarter: 2017Q1

REPORT INFORMATION
  Report Type: Spontaneous
  Country: US (occurrence: US)
  Receive Date: 20170127
  Receipt Date: 20170214
  Transmission Date: 20170428
  Serious: Yes (Hospitalization, Other)
  Sender: FDA-Public Use
  Company Number: US-SAOL THERAPEUTICS-2017SAO00160

PATIENT
  Age: 50 Year
  Sex: Female
  Weight: 58.5 kg

DRUGS (5)
  1. INSULIN [Concomitant]
     Active Substance: INSULIN NOS
  2. TRAMADOL. [Concomitant]
     Active Substance: TRAMADOL
  3. LIORESAL [Suspect]
     Active Substance: BACLOFEN
     Indication: MUSCLE SPASTICITY
     Dosage: 815.7 ?G, \DAY
     Route: 037
     Dates: start: 20080117
  4. LIORESAL [Suspect]
     Active Substance: BACLOFEN
     Indication: CEREBROVASCULAR ACCIDENT
  5. CYPROHEPTADINE. [Concomitant]
     Active Substance: CYPROHEPTADINE

REACTIONS (9)
  - Lethargy [Unknown]
  - General physical health deterioration [Unknown]
  - Encephalopathy [Recovered/Resolved]
  - Road traffic accident [Unknown]
  - Fall [Unknown]
  - Mobility decreased [Unknown]
  - Muscle tightness [Unknown]
  - Unevaluable event [Unknown]
  - Confusional state [Unknown]

NARRATIVE: CASE EVENT DATE: 2008
